FAERS Safety Report 15967074 (Version 2)
Quarter: 2019Q1

REPORT INFORMATION
  Report Type: Report from Study
  Country: US (occurrence: US)
  Receive Date: 20190215
  Receipt Date: 20190306
  Transmission Date: 20190418
  Serious: Yes (Hospitalization)
  Sender: FDA-Public Use
  Company Number: US-SA-2019SA038675

PATIENT
  Age: 86 Year
  Sex: Female

DRUGS (2)
  1. DRONEDARONE [Suspect]
     Active Substance: DRONEDARONE
     Dosage: 200 MG, BID
     Route: 058
  2. DRONEDARONE [Suspect]
     Active Substance: DRONEDARONE
     Dosage: 400 MG
     Route: 058

REACTIONS (6)
  - Vomiting [Unknown]
  - Diarrhoea [Unknown]
  - Dyspnoea [Recovered/Resolved]
  - Productive cough [Recovered/Resolved]
  - Wheezing [Recovered/Resolved]
  - Gastrointestinal disorder [Not Recovered/Not Resolved]
